FAERS Safety Report 7064461-4 (Version None)
Quarter: 2010Q4

REPORT INFORMATION
  Report Type: 
  Country: None (occurrence: None)
  Receive Date: 20101027
  Receipt Date: 20101020
  Transmission Date: 20110411
  Serious: Yes (Disabling)
  Sender: FDA-Public Use
  Company Number: NO-PFIZER INC-2010031910

PATIENT
  Age: 44 Year
  Sex: Female

DRUGS (6)
  1. LIPITOR [Suspect]
     Dosage: 80 MG, 1X/DAY
     Route: 048
     Dates: start: 20050201, end: 20091101
  2. ALBYL-E [Concomitant]
     Indication: MYOCARDIAL INFARCTION
     Dosage: 75 MG, 1X/DAY
     Route: 048
     Dates: start: 20050201
  3. METOPROLOL SUCCINATE [Concomitant]
     Indication: MYOCARDIAL INFARCTION
     Dosage: 100 MG, 1X/DAY
     Route: 048
     Dates: start: 20050201
  4. IMDUR [Concomitant]
     Indication: MYOCARDIAL INFARCTION
     Dosage: 30 MG, 1X/DAY
     Route: 048
     Dates: start: 20050201
  5. RAMIPRIL [Concomitant]
     Dosage: 2.5 MG, 1X/DAY
  6. NITROGLYCERIN [Concomitant]
     Dosage: UNK, AS NEEDED

REACTIONS (1)
  - DEMYELINATING POLYNEUROPATHY [None]
